FAERS Safety Report 5334933-9 (Version None)
Quarter: 2007Q2

REPORT INFORMATION
  Report Type: 
  Country: None (occurrence: None)
  Receive Date: 20070525
  Receipt Date: 20070524
  Transmission Date: 20071010
  Serious: Yes (Other)
  Sender: FDA-Public Use
  Company Number: JP-BRISTOL-MYERS SQUIBB COMPANY-13789334

PATIENT
  Age: 61 Year
  Sex: Female

DRUGS (5)
  1. TRIAMCINOLONE ACETONIDE [Suspect]
     Indication: VITRECTOMY
     Dosage: INTRAVITREAL DOSE POST VITRECTOMY
     Route: 031
  2. CEFAZOLIN [Concomitant]
  3. LEVOFLOXACIN [Concomitant]
  4. BETAMETHASONE [Concomitant]
  5. DICLOFENAC [Concomitant]

REACTIONS (2)
  - EYE INFECTION FUNGAL [None]
  - RETINAL DETACHMENT [None]
